FAERS Safety Report 24441430 (Version 4)
Quarter: 2025Q2

REPORT INFORMATION
  Report Type: Spontaneous
  Country: US (occurrence: US)
  Receive Date: 20241016
  Receipt Date: 20250611
  Transmission Date: 20250717
  Serious: Yes (Other)
  Sender: TEVA
  Company Number: US-TEVA-VS-3248238

PATIENT
  Age: 77 Year
  Sex: Female

DRUGS (2)
  1. AUSTEDO XR [Suspect]
     Active Substance: DEUTETRABENAZINE
     Indication: Dyskinesia
     Route: 065
  2. AUSTEDO [Suspect]
     Active Substance: DEUTETRABENAZINE
     Indication: Dyskinesia
     Dosage: ONE 6MG TABLET AND ONE 12 MG TABLET TWICE DAY
     Route: 065

REACTIONS (9)
  - Spinal operation [Unknown]
  - Insomnia [Unknown]
  - Temporomandibular pain and dysfunction syndrome [Unknown]
  - Arthritis [Unknown]
  - Glossodynia [Unknown]
  - Drug ineffective [Unknown]
  - Oropharyngeal pain [Unknown]
  - Therapeutic response shortened [Unknown]
  - Product prescribing error [Unknown]
